FAERS Safety Report 7777085-8 (Version None)
Quarter: 2011Q3

REPORT INFORMATION
  Report Type: 
  Country: None (occurrence: None)
  Receive Date: 20110926
  Receipt Date: 20110516
  Transmission Date: 20111222
  Serious: No
  Sender: FDA-Public Use
  Company Number: US-BAUSCH-2011BL003289

PATIENT
  Age: 74 Year
  Sex: Male

DRUGS (2)
  1. TYLENOL /USA/ [Concomitant]
  2. PREDNISOLONE SODIUM PHOSPHATE [Suspect]
     Indication: PRODUCT USED FOR UNKNOWN INDICATION
     Route: 047
     Dates: start: 20110512, end: 20110512

REACTIONS (2)
  - HEADACHE [None]
  - EYELID PAIN [None]
